FAERS Safety Report 24088760 (Version 2)
Quarter: 2024Q3

REPORT INFORMATION
  Report Type: Spontaneous
  Country: FR (occurrence: FR)
  Receive Date: 20240715
  Receipt Date: 20240717
  Transmission Date: 20241017
  Serious: Yes (Hospitalization)
  Sender: ROCHE
  Company Number: None

PATIENT
  Age: 76 Year
  Sex: Male
  Weight: 65 kg

DRUGS (11)
  1. RITUXIMAB [Suspect]
     Active Substance: RITUXIMAB
     Indication: Mantle cell lymphoma stage IV
     Route: 042
     Dates: start: 20231101, end: 20240305
  2. TRUXIMA [Suspect]
     Active Substance: RITUXIMAB-ABBS
     Indication: Mantle cell lymphoma stage IV
     Route: 065
     Dates: start: 20231119
  3. TRUXIMA [Suspect]
     Active Substance: RITUXIMAB-ABBS
     Route: 065
     Dates: start: 20231219
  4. TRUXIMA [Suspect]
     Active Substance: RITUXIMAB-ABBS
     Route: 065
     Dates: start: 20231129
  5. TRUXIMA [Suspect]
     Active Substance: RITUXIMAB-ABBS
     Route: 065
     Dates: start: 20240305
  6. TRUXIMA [Suspect]
     Active Substance: RITUXIMAB-ABBS
     Route: 065
     Dates: start: 20240118
  7. ACETAMINOPHEN [Concomitant]
     Active Substance: ACETAMINOPHEN
     Indication: Pain
     Route: 048
  8. VALACYCLOVIR HYDROCHLORIDE [Concomitant]
     Active Substance: VALACYCLOVIR HYDROCHLORIDE
     Indication: Opportunistic infection prophylaxis
     Route: 048
  9. PENTACARINAT [Concomitant]
     Active Substance: PENTAMIDINE ISETHIONATE
     Indication: Opportunistic infection prophylaxis
     Route: 055
  10. ESOMEPRAZOLE [Concomitant]
     Active Substance: ESOMEPRAZOLE
     Indication: Dyspepsia
     Route: 048
  11. GAVISCON [Concomitant]
     Active Substance: ALUMINUM HYDROXIDE\MAGNESIUM CARBONATE
     Indication: Dyspepsia
     Route: 048

REACTIONS (1)
  - Giant cell arteritis [Recovered/Resolved]

NARRATIVE: CASE EVENT DATE: 20240314
